FAERS Safety Report 6192094-0 (Version None)
Quarter: 2009Q2

REPORT INFORMATION
  Report Type: 
  Country: None (occurrence: None)
  Receive Date: 20090515
  Receipt Date: 20090504
  Transmission Date: 20091009
  Serious: Yes (Hospitalization, Other)
  Sender: FDA-Public Use
  Company Number: US-PFIZER INC-2009207938

PATIENT
  Age: 59 Year
  Sex: Female

DRUGS (2)
  1. SOLU-MEDROL [Suspect]
     Dates: start: 20090401
  2. ACEON [Concomitant]

REACTIONS (3)
  - BLOOD GLUCOSE INCREASED [None]
  - INCORRECT DRUG ADMINISTRATION DURATION [None]
  - SPINAL DECOMPRESSION [None]
